FAERS Safety Report 8190308-9 (Version None)
Quarter: 2012Q1

REPORT INFORMATION
  Report Type: 
  Country: None (occurrence: None)
  Receive Date: 20120307
  Receipt Date: 20120306
  Transmission Date: 20120608
  Serious: No
  Sender: FDA-Public Use
  Company Number: US-PFIZER INC-2012060242

PATIENT
  Sex: Male

DRUGS (1)
  1. ADVIL PM [Suspect]
     Indication: SLEEP DISORDER
     Dosage: TWO CAPLETS DAILY
     Route: 048
     Dates: start: 20120305

REACTIONS (3)
  - POOR QUALITY SLEEP [None]
  - DRUG INEFFECTIVE [None]
  - DIZZINESS [None]
